FAERS Safety Report 17548540 (Version 1)
Quarter: 2020Q1

REPORT INFORMATION
  Report Type: Spontaneous
  Country: US (occurrence: US)
  Receive Date: 20200306
  Receipt Date: 20200306
  Transmission Date: 20200409
  Serious: Yes (Hospitalization)
  Sender: FDA-Public Use
  Company Number: None

PATIENT
  Age: 78 Year
  Sex: Male
  Weight: 110.68 kg

DRUGS (1)
  1. DIGOXIN (DIGOXIN 0.125MG TAB) [Suspect]
     Active Substance: DIGOXIN
     Indication: ATRIAL FIBRILLATION
     Dosage: ?          OTHER FREQUENCY:OTHER;?
     Route: 048
     Dates: start: 20170412, end: 20200207

REACTIONS (4)
  - Nausea [None]
  - Toxicity to various agents [None]
  - Vomiting [None]
  - Confusional state [None]

NARRATIVE: CASE EVENT DATE: 20200206
